FAERS Safety Report 9733373 (Version 4)
Quarter: 2014Q1

REPORT INFORMATION
  Report Type: Report from Study
  Country: BR (occurrence: BR)
  Receive Date: 20131204
  Receipt Date: 20140129
  Transmission Date: 20141002
  Serious: Yes (Hospitalization, Other)
  Sender: FDA-Public Use
  Company Number: BR-ROCHE-1301139

PATIENT
  Sex: Female
  Weight: 103 kg

DRUGS (8)
  1. ACTEMRA [Suspect]
     Indication: RHEUMATOID ARTHRITIS
     Dosage: MOST RECENT INFUSION RECEIVED ON 01/AUG/2013
     Route: 065
     Dates: start: 20101216
  2. SYNTHROID [Concomitant]
  3. REUQUINOL [Concomitant]
  4. CYMBALTA [Concomitant]
  5. AMLODIPINE [Concomitant]
  6. DONAREN [Concomitant]
  7. COZAAR [Concomitant]
  8. RIVOTRIL [Concomitant]

REACTIONS (6)
  - Limb operation [Unknown]
  - Infection [Not Recovered/Not Resolved]
  - Pneumonia [Recovered/Resolved]
  - Pain in extremity [Recovering/Resolving]
  - Arthralgia [Recovering/Resolving]
  - Drug dose omission [Unknown]
